FAERS Safety Report 23786853 (Version 1)
Quarter: 2024Q2

REPORT INFORMATION
  Report Type: Spontaneous
  Country: US (occurrence: US)
  Receive Date: 20240426
  Receipt Date: 20240426
  Transmission Date: 20240715
  Serious: Yes (Death, Other)
  Sender: FDA-Public Use
  Company Number: US-AMGEN-USASP2024080158

PATIENT
  Age: 6 Year
  Sex: Male

DRUGS (6)
  1. FILGRASTIM [Suspect]
     Active Substance: FILGRASTIM
     Indication: Haematopoietic stem cell mobilisation
     Dosage: UNK
     Route: 065
  2. CARBOPLATIN [Concomitant]
     Active Substance: CARBOPLATIN
     Dosage: UNK
  3. ETOPOSIDE [Concomitant]
     Active Substance: ETOPOSIDE
  4. IFOSFAMIDE [Concomitant]
     Active Substance: IFOSFAMIDE
  5. PLERIXAFOR [Concomitant]
     Active Substance: PLERIXAFOR
  6. TAZEMETOSTAT [Concomitant]
     Active Substance: TAZEMETOSTAT

REACTIONS (3)
  - Pineal parenchymal neoplasm malignant [Fatal]
  - Bone marrow harvest failure [Unknown]
  - Metastases to meninges [Unknown]
